FAERS Safety Report 20515893 (Version 4)
Quarter: 2023Q4

REPORT INFORMATION
  Report Type: Spontaneous
  Country: FR (occurrence: FR)
  Receive Date: 20220225
  Receipt Date: 20231005
  Transmission Date: 20240110
  Serious: Yes (Other)
  Sender: FDA-Public Use
  Company Number: FR-GILEAD-2022-0564922

PATIENT
  Sex: Female
  Weight: 90 kg

DRUGS (10)
  1. METFORMIN [Suspect]
     Active Substance: METFORMIN HYDROCHLORIDE
     Indication: Product used for unknown indication
     Dosage: UNK
     Route: 065
  2. SACITUZUMAB GOVITECAN [Suspect]
     Active Substance: SACITUZUMAB GOVITECAN
     Indication: Triple negative breast cancer
     Dosage: 10 MILLIGRAM/KILOGRAM (C1D1)
     Route: 042
     Dates: start: 20211202, end: 20211202
  3. SACITUZUMAB GOVITECAN [Suspect]
     Active Substance: SACITUZUMAB GOVITECAN
     Dosage: 10 MILLIGRAM/KILOGRAM
     Route: 042
     Dates: start: 20211202, end: 20211209
  4. SACITUZUMAB GOVITECAN [Suspect]
     Active Substance: SACITUZUMAB GOVITECAN
     Dosage: 10 MILLIGRAM/KILOGRAM (C1D8)
     Route: 042
     Dates: start: 20211209, end: 20211209
  5. SACITUZUMAB GOVITECAN [Suspect]
     Active Substance: SACITUZUMAB GOVITECAN
     Dosage: 10 MILLIGRAM/KILOGRAM (C2D1)
     Route: 042
     Dates: start: 20220105, end: 20220105
  6. SACITUZUMAB GOVITECAN [Suspect]
     Active Substance: SACITUZUMAB GOVITECAN
     Dosage: 10 MILLIGRAM/KILOGRAM (C2D8)
     Route: 042
     Dates: start: 20220112, end: 20220112
  7. SACITUZUMAB GOVITECAN [Suspect]
     Active Substance: SACITUZUMAB GOVITECAN
     Dosage: 10 MILLIGRAM/KILOGRAM (C3D1)
     Route: 042
     Dates: start: 20220125, end: 20220125
  8. SACITUZUMAB GOVITECAN [Suspect]
     Active Substance: SACITUZUMAB GOVITECAN
     Dosage: 10 MILLIGRAM/KILOGRAM (CYCLE 3 DAY 8)
     Route: 042
     Dates: start: 20220201, end: 20220201
  9. SACITUZUMAB GOVITECAN [Suspect]
     Active Substance: SACITUZUMAB GOVITECAN
     Dosage: 10 MILLIGRAM/KILOGRAM (C5 D1 AND D8)
     Route: 042
     Dates: start: 20220316, end: 20220322
  10. SACITUZUMAB GOVITECAN [Suspect]
     Active Substance: SACITUZUMAB GOVITECAN
     Dosage: 10 MILLIGRAM/KILOGRAM
     Route: 042
     Dates: start: 20220401

REACTIONS (4)
  - Neutropenia [Recovered/Resolved]
  - Mucosal inflammation [Recovered/Resolved]
  - Therapy interrupted [Recovered/Resolved]
  - Diarrhoea [Recovered/Resolved]

NARRATIVE: CASE EVENT DATE: 20211211
